FAERS Safety Report 7465915 (Version 2)
Quarter: 2012Q4

REPORT INFORMATION
  Report Type: Report from Study
  Country: FR (occurrence: FR)
  Receive Date: 20100712
  Receipt Date: 20121213
  Transmission Date: 20130627
  Serious: Yes (Hospitalization)
  Sender: FDA-Public Use
  Company Number: FR-CELGENEUS-056-50794-10070088

PATIENT
  Age: 41 Year
  Sex: Male
  Weight: 67 kg

DRUGS (5)
  1. VIDAZA [Suspect]
     Indication: MDS
     Dosage: 120 Milligram
     Route: 058
     Dates: start: 20100208, end: 20100605
  2. NEORECORMON [Suspect]
     Indication: MDS
     Dosage: 60000 IU (International Unit)
     Route: 058
     Dates: start: 20100208, end: 20100605
  3. EXJADE [Concomitant]
     Indication: DRUG USE FOR UNKNOWN INDICATION
     Dosage: 2500 Milligram
     Route: 048
     Dates: start: 20080521
  4. HEXAQUINE [Concomitant]
     Indication: DRUG USE FOR UNKNOWN INDICATION
     Dosage: 5 Unknown
     Route: 048
     Dates: start: 20100520
  5. INEXIUM [Concomitant]
     Indication: DRUG USE FOR UNKNOWN INDICATION
     Route: 065

REACTIONS (3)
  - Back pain [Recovered/Resolved]
  - Pneumonia [Recovered/Resolved]
  - Febrile neutropenia [Recovered/Resolved]
